FAERS Safety Report 5655458-7 (Version None)
Quarter: 2008Q1

REPORT INFORMATION
  Report Type: 
  Country: None (occurrence: None)
  Receive Date: 20080307
  Receipt Date: 20080225
  Transmission Date: 20080703
  Serious: Yes (Hospitalization, Other)
  Sender: FDA-Public Use
  Company Number: US-ELI_LILLY_AND_COMPANY-US200802005638

PATIENT
  Sex: Female

DRUGS (6)
  1. HUMULIN N [Suspect]
     Indication: DIABETES MELLITUS
     Dates: start: 19900101
  2. HUMULIN N [Suspect]
     Dates: start: 19900101
  3. HUMULIN N [Suspect]
     Dates: start: 19900101
  4. HUMULIN R [Suspect]
     Indication: DIABETES MELLITUS
  5. LYRICA [Concomitant]
     Indication: NEUROPATHY PERIPHERAL
  6. PREDNISONE TAB [Concomitant]
     Indication: SARCOIDOSIS

REACTIONS (8)
  - BACK PAIN [None]
  - BLOOD GLUCOSE DECREASED [None]
  - BLOOD GLUCOSE INCREASED [None]
  - KNEE ARTHROPLASTY [None]
  - NEUROPATHY PERIPHERAL [None]
  - OSTEOARTHRITIS [None]
  - PNEUMONIA [None]
  - SURGERY [None]
